FAERS Safety Report 19063320 (Version 1)
Quarter: 2021Q1

REPORT INFORMATION
  Report Type: Spontaneous
  Country: CN (occurrence: CN)
  Receive Date: 20210326
  Receipt Date: 20210326
  Transmission Date: 20210420
  Serious: Yes (Hospitalization)
  Sender: FDA-Public Use
  Company Number: NVSC2021CN064977

PATIENT

DRUGS (1)
  1. NILOTINIB [Suspect]
     Active Substance: NILOTINIB
     Indication: CHRONIC MYELOID LEUKAEMIA
     Dosage: UNK (FOR 14 MONTHS)
     Route: 048

REACTIONS (9)
  - Pleural effusion [Unknown]
  - Arteriosclerosis coronary artery [Unknown]
  - Palpitations [Unknown]
  - Pulmonary fibrosis [Unknown]
  - Chest discomfort [Unknown]
  - Cytogenetic abnormality [Unknown]
  - Pericardial effusion [Unknown]
  - Cardiomyopathy [Unknown]
  - Respiratory failure [Unknown]
